FAERS Safety Report 22920972 (Version 2)
Quarter: 2023Q4

REPORT INFORMATION
  Report Type: Spontaneous
  Country: BR (occurrence: BR)
  Receive Date: 20230908
  Receipt Date: 20231028
  Transmission Date: 20240110
  Serious: Yes (Other)
  Sender: FDA-Public Use
  Company Number: BR-SANDOZ-SDZ2023BR024090

PATIENT
  Sex: Female
  Weight: 85 kg

DRUGS (2)
  1. ADALIMUMAB [Suspect]
     Active Substance: ADALIMUMAB\ISOPROPYL ALCOHOL
     Indication: Psoriasis
     Dosage: 300 MG (150 MG SYRINGE)
     Route: 065
  2. ADALIMUMAB [Suspect]
     Active Substance: ADALIMUMAB\ISOPROPYL ALCOHOL
     Dosage: UNK300 MG IN WEEKS 0,1,2,3,4
     Route: 058

REACTIONS (5)
  - Blindness [Unknown]
  - Vision blurred [Unknown]
  - Self esteem decreased [Unknown]
  - Therapeutic product effect decreased [Unknown]
  - Psoriasis [Unknown]
